FAERS Safety Report 16300861 (Version 1)
Quarter: 2019Q2

REPORT INFORMATION
  Report Type: Spontaneous
  Country: US (occurrence: US)
  Receive Date: 20190510
  Receipt Date: 20190510
  Transmission Date: 20190711
  Serious: Yes (Death, Hospitalization)
  Sender: FDA-Public Use
  Company Number: US-JNJFOC-20190508060

PATIENT
  Age: 89 Year
  Sex: Female

DRUGS (1)
  1. HALDOL [Suspect]
     Active Substance: HALOPERIDOL
     Indication: PRODUCT USED FOR UNKNOWN INDICATION
     Route: 065
     Dates: start: 20190420

REACTIONS (7)
  - Dysphagia [Unknown]
  - Renal failure [Fatal]
  - Muscle rigidity [Unknown]
  - Stupor [Unknown]
  - Staring [Unknown]
  - Condition aggravated [Unknown]
  - Eating disorder [Unknown]

NARRATIVE: CASE EVENT DATE: 20190421
